FAERS Safety Report 24275984 (Version 1)
Quarter: 2024Q3

REPORT INFORMATION
  Report Type: Report from Study
  Country: US (occurrence: US)
  Receive Date: 20240903
  Receipt Date: 20240903
  Transmission Date: 20241016
  Serious: Yes (Hospitalization)
  Sender: ROCHE
  Company Number: US-ROCHE-10000067080

PATIENT
  Age: 16 Year
  Sex: Male

DRUGS (2)
  1. HEMLIBRA [Suspect]
     Active Substance: EMICIZUMAB-KXWH
     Indication: Factor VIII deficiency
     Dosage: INJECT 180MG SUBCUTANEOUSLY WEEKLY (DRAW UP IN SEPARATE SYRINGES 1MLFROM (1) 150MG VIAL AND 1ML FROM
     Route: 058
  2. HEMLIBRA [Suspect]
     Active Substance: EMICIZUMAB-KXWH
     Dosage: INJECT 180MG SUBCUTANEOUSLY WEEKLY (DRAW UP IN SEPARATE SYRINGES 1MLFROM (1) 150MG VIAL AND 1ML FROM
     Route: 058

REACTIONS (1)
  - Haemophilia [Unknown]
